FAERS Safety Report 13111098 (Version 1)
Quarter: 2017Q1

REPORT INFORMATION
  Report Type: Spontaneous
  Country: US (occurrence: US)
  Receive Date: 20170112
  Receipt Date: 20170112
  Transmission Date: 20170428
  Serious: No
  Sender: FDA-Public Use
  Company Number: US-UPSHER-SMITH LABORATORIES, INC.-16001483

PATIENT
  Sex: Male

DRUGS (17)
  1. OXYBUTYNIN CHLORIDE. [Concomitant]
     Active Substance: OXYBUTYNIN CHLORIDE
     Dosage: 1 TABLET BY MOUTH TWICE A DAY
     Route: 048
  2. AVODART [Concomitant]
     Active Substance: DUTASTERIDE
     Dosage: UNK, UNK
     Route: 048
  3. TRAZODONE HYDROCHLORIDE. [Concomitant]
     Active Substance: TRAZODONE HYDROCHLORIDE
     Dosage: 1 TAB(S) ORAL NIGHTLY (BEDTIME)
     Route: 048
  4. AMANTADINE HYDROCHLORIDE. [Suspect]
     Active Substance: AMANTADINE HYDROCHLORIDE
     Dosage: 100 MG, TID WHILE AWAKE
     Route: 048
  5. LYRICA [Concomitant]
     Active Substance: PREGABALIN
     Dosage: 1 CAPSULE BY MOUTH AT NIGHTTIME, THEN INCREASE AS TOLERATED TO 1 CAPSULE THREE TIMES A DAY
     Route: 048
  6. METHOCARBAMOL. [Concomitant]
     Active Substance: METHOCARBAMOL
     Indication: BACK PAIN
     Dosage: 1-2 TABLETS BY MOUTH EVERY 6 HOURS IF NEEDED FOR BACKACHE AND MUSCLE SPASM
     Route: 048
  7. TRIHEXYPHENIDYL [Concomitant]
     Active Substance: TRIHEXYPHENIDYL
     Dosage: 1 TABLET BY MOUTH THREE TIMES A DAY WHILE AWAKE
     Route: 048
  8. AMLODIPINE [Concomitant]
     Active Substance: AMLODIPINE BESYLATE
     Dosage: 1 TABLET BY MOUTH ONCE DAILY
     Route: 048
  9. METHOCARBAMOL. [Concomitant]
     Active Substance: METHOCARBAMOL
     Indication: MUSCLE SPASMS
  10. CARBIDOPA AND LEVODOPA [Concomitant]
     Active Substance: CARBIDOPA\LEVODOPA
     Indication: PARKINSON^S DISEASE
     Dosage: TAKAE 1 AND 1/2 TO 2 TABLETS BY MOUTH FIVE TIMES A DAY AS TOLERATED
     Route: 048
  11. BROMOCRIPTINE [Concomitant]
     Active Substance: BROMOCRIPTINE
     Dosage: 1 TABLET BY MOUTH ONCE A DAY
     Route: 048
  12. NEUPRO [Concomitant]
     Active Substance: ROTIGOTINE
     Indication: PARKINSON^S DISEASE
     Dosage: APPLY 1 PATCH TRANSDERMAL DAILY
     Route: 062
  13. CELECOXIB. [Concomitant]
     Active Substance: CELECOXIB
     Indication: PAIN
     Dosage: 1-2 CAPSULES BY MOUTH EVER 12 HOURS AS NEEDED FOR PAIN
     Route: 048
  14. DULOXETINE. [Concomitant]
     Active Substance: DULOXETINE
     Dosage: 1 CAPSULE BY MOUTH ONCE DAILY
     Route: 048
  15. TRAZODONE HYDROCHLORIDE. [Concomitant]
     Active Substance: TRAZODONE HYDROCHLORIDE
     Dosage: 1 TABLET BY MOUTH AT BEDTIME
     Route: 048
  16. CLONIDINE. [Concomitant]
     Active Substance: CLONIDINE
     Dosage: 1 TABLET BY MOUTH TWICE A DAY
     Route: 048
  17. FLOMAX [Concomitant]
     Active Substance: TAMSULOSIN HYDROCHLORIDE
     Dosage: 1 CAP(S) ORAL TWICE DAILY
     Route: 048

REACTIONS (1)
  - Drug ineffective [Unknown]
